FAERS Safety Report 19371739 (Version 2)
Quarter: 2021Q2

REPORT INFORMATION
  Report Type: Report from Study
  Country: KR (occurrence: KR)
  Receive Date: 20210604
  Receipt Date: 20210612
  Transmission Date: 20210717
  Serious: Yes (Other)
  Sender: FDA-Public Use
  Company Number: KR-AMGEN INC.-KORCT2021084281

PATIENT
  Age: 64 Year
  Sex: Male

DRUGS (22)
  1. FILGRASTIM [Suspect]
     Active Substance: FILGRASTIM
     Dosage: 623 MILLIGRAM
     Route: 065
     Dates: start: 20080806, end: 20080806
  2. FILGRASTIM [Suspect]
     Active Substance: FILGRASTIM
     Dosage: 623 MILLIGRAM
     Route: 065
     Dates: start: 20080923, end: 20080923
  3. FILGRASTIM [Suspect]
     Active Substance: FILGRASTIM
     Dosage: 860 MILLIGRAM
     Route: 065
     Dates: start: 20080923, end: 20080923
  4. DEXAMETHASONE. [Concomitant]
     Active Substance: DEXAMETHASONE
     Dosage: 4 MILLIGRAM
     Route: 065
     Dates: start: 20080805, end: 20080807
  5. FOLIC ACID. [Concomitant]
     Active Substance: FOLIC ACID
     Indication: PRODUCT USED FOR UNKNOWN INDICATION
     Dosage: 1 MILLIGRAM
     Route: 065
  6. PEMETREXED. [Concomitant]
     Active Substance: PEMETREXED
     Dosage: 623 MILLIGRAM
     Route: 065
     Dates: start: 20080923, end: 20080923
  7. FILGRASTIM [Suspect]
     Active Substance: FILGRASTIM
     Dosage: 623 MILLIGRAM
     Route: 065
     Dates: start: 20080827, end: 20080827
  8. FILGRASTIM [Suspect]
     Active Substance: FILGRASTIM
     Dosage: 850 MILLIGRAM
     Route: 065
     Dates: start: 20080923, end: 20080923
  9. FILGRASTIM [Suspect]
     Active Substance: FILGRASTIM
     Dosage: 860 MILLIGRAM
     Route: 065
     Dates: start: 20080714, end: 20080714
  10. CYANOCOBALAMIN. [Concomitant]
     Active Substance: CYANOCOBALAMIN
     Indication: PRODUCT USED FOR UNKNOWN INDICATION
     Dosage: UNK
     Route: 065
     Dates: start: 20080827
  11. FILGRASTIM [Suspect]
     Active Substance: FILGRASTIM
     Dosage: 850 MILLIGRAM
     Route: 065
     Dates: start: 20080806, end: 20080806
  12. FILGRASTIM [Suspect]
     Active Substance: FILGRASTIM
     Dosage: 850 MILLIGRAM
     Route: 065
     Dates: start: 20080827, end: 20080827
  13. DEXAMETHASONE. [Concomitant]
     Active Substance: DEXAMETHASONE
     Dosage: 4 MILLIGRAM
     Route: 065
     Dates: start: 20080826, end: 20080828
  14. FILGRASTIM [Suspect]
     Active Substance: FILGRASTIM
     Dosage: 850 MILLIGRAM
     Route: 065
     Dates: start: 20080714, end: 20080714
  15. FILGRASTIM [Suspect]
     Active Substance: FILGRASTIM
     Dosage: 860 MILLIGRAM
     Route: 065
     Dates: start: 20080827, end: 20080827
  16. PEMETREXED. [Concomitant]
     Active Substance: PEMETREXED
     Indication: PRODUCT USED FOR UNKNOWN INDICATION
     Dosage: 623 MILLIGRAM
     Route: 065
     Dates: start: 20080714, end: 20080714
  17. PEMETREXED. [Concomitant]
     Active Substance: PEMETREXED
     Dosage: 623 MILLIGRAM
     Route: 065
     Dates: start: 20080827, end: 20080827
  18. DEXAMETHASONE. [Concomitant]
     Active Substance: DEXAMETHASONE
     Indication: PRODUCT USED FOR UNKNOWN INDICATION
     Dosage: 4 MILLIGRAM
     Route: 065
     Dates: start: 20080713, end: 20080715
  19. DEXAMETHASONE. [Concomitant]
     Active Substance: DEXAMETHASONE
     Dosage: 4 MILLIGRAM
     Route: 065
     Dates: start: 20080922, end: 20080924
  20. FILGRASTIM [Suspect]
     Active Substance: FILGRASTIM
     Indication: PRODUCT USED FOR UNKNOWN INDICATION
     Dosage: 623 MILLIGRAM
     Route: 065
     Dates: start: 20080714, end: 20080714
  21. FILGRASTIM [Suspect]
     Active Substance: FILGRASTIM
     Dosage: 860 MILLIGRAM
     Route: 065
     Dates: start: 20080806
  22. PEMETREXED. [Concomitant]
     Active Substance: PEMETREXED
     Dosage: 623 MILLIGRAM
     Route: 065
     Dates: start: 20080806, end: 20080806

REACTIONS (1)
  - Neutropenia [Recovered/Resolved]

NARRATIVE: CASE EVENT DATE: 20080722
